FAERS Safety Report 8556067-2 (Version None)
Quarter: 2012Q3

REPORT INFORMATION
  Report Type: 
  Country: None (occurrence: None)
  Receive Date: 20120801
  Receipt Date: 20110126
  Transmission Date: 20120928
  Serious: Yes (Hospitalization)
  Sender: FDA-Public Use
  Company Number: US-BAYER-201033753NA

PATIENT
  Age: 34 Year
  Sex: Female
  Weight: 75 kg

DRUGS (16)
  1. NAPROXEN (ALEVE) [Concomitant]
  2. AUGMENTIN XR [Concomitant]
     Indication: SINUSITIS
     Dosage: 2 TAB DOR 10 DAYS
     Route: 048
     Dates: start: 20040823
  3. ZOLOFT [Concomitant]
     Indication: ANGER
     Route: 048
     Dates: start: 20040414
  4. YASMIN [Suspect]
     Indication: ACNE
     Dates: start: 20040801, end: 20050101
  5. ZELNORM [Concomitant]
     Indication: CONSTIPATION
  6. YASMIN [Suspect]
     Indication: PREMENSTRUAL SYNDROME
     Dosage: UNK
     Dates: start: 20050311
  7. DROSPIRENONE AND ETHINYL ESTRADIOL [Suspect]
     Indication: PRODUCT USED FOR UNKNOWN INDICATION
     Dates: start: 20041101, end: 20050101
  8. ZELNORM [Concomitant]
     Indication: ABDOMINAL DISTENSION
     Dates: start: 20040801
  9. ZOLOFT [Concomitant]
     Indication: FATIGUE
  10. YAZ [Suspect]
     Indication: PRODUCT USED FOR UNKNOWN INDICATION
     Dates: start: 20041101, end: 20050101
  11. ZELNORM [Concomitant]
     Indication: IRRITABLE BOWEL SYNDROME
  12. ZOLOFT [Concomitant]
     Indication: MOOD SWINGS
  13. WELLBUTRIN [Concomitant]
     Dates: start: 20040112
  14. EFFEXOR XR [Concomitant]
     Indication: MOOD SWINGS
  15. TESTOSTERONE [Concomitant]
     Indication: BREAST TENDERNESS
     Route: 061
     Dates: start: 20040810
  16. VIOXX [Concomitant]

REACTIONS (4)
  - BILIARY DYSKINESIA [None]
  - ABDOMINAL PAIN UPPER [None]
  - DYSPEPSIA [None]
  - NAUSEA [None]
